FAERS Safety Report 24104125 (Version 1)
Quarter: 2024Q3

REPORT INFORMATION
  Report Type: Spontaneous
  Country: US (occurrence: US)
  Receive Date: 20240717
  Receipt Date: 20240717
  Transmission Date: 20241017
  Serious: No
  Sender: PFIZER
  Company Number: US-PFIZER INC-202400214400

PATIENT
  Age: 65 Year
  Sex: Female

DRUGS (1)
  1. IBRANCE [Suspect]
     Active Substance: PALBOCICLIB
     Dosage: 125 MG, CYCLIC (125MG FOR 21 DAYS ORALLY FOLLOWED BY A 7 DAY BREAK)
     Route: 048
     Dates: start: 20240522

REACTIONS (1)
  - Full blood count abnormal [Unknown]
